FAERS Safety Report 15682441 (Version 1)
Quarter: 2018Q4

REPORT INFORMATION
  Report Type: Spontaneous
  Country: JP (occurrence: JP)
  Receive Date: 20181203
  Receipt Date: 20181203
  Transmission Date: 20190205
  Serious: Yes (Other)
  Sender: FDA-Public Use
  Company Number: JP-PFIZER INC-2018489244

PATIENT
  Age: 10 Decade
  Sex: Female

DRUGS (1)
  1. CORTRIL [Suspect]
     Active Substance: HYDROCORTISONE
     Route: 048

REACTIONS (5)
  - Depressed level of consciousness [Unknown]
  - Feeding disorder [Unknown]
  - Aspiration [Unknown]
  - Condition aggravated [Unknown]
  - Somnolence [Unknown]
